FAERS Safety Report 7918267-1 (Version None)
Quarter: 2011Q4

REPORT INFORMATION
  Report Type: 
  Country: None (occurrence: None)
  Receive Date: 20111116
  Receipt Date: 20111109
  Transmission Date: 20120403
  Serious: Yes (Other)
  Sender: FDA-Public Use
  Company Number: JP-GLAXOSMITHKLINE-B0748123A

PATIENT
  Sex: Male
  Weight: 44 kg

DRUGS (11)
  1. LOXONIN [Concomitant]
     Route: 048
  2. LYRICA [Concomitant]
     Route: 048
  3. HYCAMTIN [Suspect]
     Indication: LUNG NEOPLASM MALIGNANT
     Dosage: 1.848MG PER DAY
     Route: 042
     Dates: start: 20110912, end: 20110916
  4. OXYPERTINE [Concomitant]
     Indication: SEDATION
     Dosage: 40MG PER DAY
     Route: 048
  5. ZOVIRAX [Suspect]
     Indication: HERPES ZOSTER
     Dosage: 750MG PER DAY
     Route: 042
     Dates: start: 20110914, end: 20110921
  6. KYTRIL [Suspect]
     Indication: PROPHYLAXIS OF NAUSEA AND VOMITING
     Dosage: 3MG PER DAY
     Route: 042
     Dates: start: 20110912, end: 20110916
  7. SELBEX [Concomitant]
     Route: 048
  8. MUCODYNE [Concomitant]
     Indication: PRODUCTIVE COUGH
     Dosage: 1500MG PER DAY
     Route: 048
  9. DEXTROMETHORPHAN HYDROBROMIDE [Concomitant]
     Indication: ANTITUSSIVE THERAPY
     Dosage: 90MG PER DAY
     Route: 048
  10. METHYCOBAL [Concomitant]
     Route: 048
  11. MAGMITT [Concomitant]
     Indication: CONSTIPATION
     Dosage: 1500MG PER DAY
     Route: 048

REACTIONS (5)
  - INJECTION SITE VASCULITIS [None]
  - INJECTION SITE INDURATION [None]
  - INJECTION SITE PAIN [None]
  - INJECTION SITE ERYTHEMA [None]
  - INJECTION SITE SWELLING [None]
